FAERS Safety Report 12904216 (Version 2)
Quarter: 2016Q4

REPORT INFORMATION
  Report Type: Spontaneous
  Country: ES (occurrence: ES)
  Receive Date: 20161102
  Receipt Date: 20161123
  Transmission Date: 20170207
  Serious: Yes (Hospitalization)
  Sender: FDA-Public Use
  Company Number: ES-UCBSA-2016040506

PATIENT
  Age: 71 Year
  Sex: Male

DRUGS (3)
  1. METOJECT [Interacting]
     Active Substance: METHOTREXATE SODIUM
     Indication: RHEUMATOID ARTHRITIS
     Dosage: 15 ?G, WEEKLY (QW)
     Route: 058
     Dates: end: 20141201
  2. ZAMENE [Interacting]
     Active Substance: DEFLAZACORT
     Indication: RHEUMATOID ARTHRITIS
     Dosage: 6 MG, ONCE DAILY (QD)
     Route: 048
  3. CIMZIA [Suspect]
     Active Substance: CERTOLIZUMAB PEGOL
     Indication: RHEUMATOID ARTHRITIS
     Dosage: UNK
     Route: 058
     Dates: start: 20141031, end: 20141201

REACTIONS (2)
  - Drug interaction [Unknown]
  - Pneumonia [Recovered/Resolved]

NARRATIVE: CASE EVENT DATE: 2014
